FAERS Safety Report 13333981 (Version 10)
Quarter: 2019Q1

REPORT INFORMATION
  Report Type: Spontaneous
  Country: US (occurrence: US)
  Receive Date: 20170313
  Receipt Date: 20190320
  Transmission Date: 20190417
  Serious: Yes (Death)
  Sender: FDA-Public Use
  Company Number: US-ACTELION-A-US2016-138253

PATIENT
  Age: 70 Year
  Sex: Female

DRUGS (17)
  1. ZOFRAN [Concomitant]
     Active Substance: ONDANSETRON HYDROCHLORIDE
  2. ZANTAC [Concomitant]
     Active Substance: RANITIDINE HYDROCHLORIDE
  3. REMODULIN [Suspect]
     Active Substance: TREPROSTINIL
     Dosage: 23 NG/KG, UNK
     Route: 065
  4. FOLIC ACID. [Concomitant]
     Active Substance: FOLIC ACID
  5. VITAMIN B12 [Concomitant]
     Active Substance: CYANOCOBALAMIN
  6. REMODULIN [Suspect]
     Active Substance: TREPROSTINIL
     Dosage: 30.5 NG/KG, PER MIN
     Route: 065
     Dates: start: 20190109
  7. LOMOTIL [Concomitant]
     Active Substance: ATROPINE SULFATE\DIPHENOXYLATE HYDROCHLORIDE
  8. LASIX [Concomitant]
     Active Substance: FUROSEMIDE
  9. ZYRTEC [Concomitant]
     Active Substance: CETIRIZINE HYDROCHLORIDE
  10. REMODULIN [Suspect]
     Active Substance: TREPROSTINIL
     Dosage: UNK
     Route: 065
  11. POTASSIUM [Concomitant]
     Active Substance: POTASSIUM
  12. DIGOXIN. [Concomitant]
     Active Substance: DIGOXIN
  13. WELLBUTRIN [Concomitant]
     Active Substance: BUPROPION HYDROCHLORIDE
  14. OPSUMIT [Suspect]
     Active Substance: MACITENTAN
     Indication: PULMONARY HYPERTENSION
     Dosage: 10 MG, QD
     Route: 048
     Dates: start: 20141007
  15. REMODULIN [Suspect]
     Active Substance: TREPROSTINIL
     Dosage: 13.5 NG/KG, PER MIN
     Route: 065
     Dates: start: 20121228
  16. REMODULIN [Suspect]
     Active Substance: TREPROSTINIL
     Indication: PRODUCT USED FOR UNKNOWN INDICATION
     Dosage: 14.5 NG/KG, PER MIN
     Route: 065
     Dates: start: 20121228
  17. ADCIRCA [Concomitant]
     Active Substance: TADALAFIL
     Dosage: 40 MG, QD
     Dates: start: 20120716

REACTIONS (17)
  - Dizziness [Unknown]
  - Blood iron decreased [Unknown]
  - Tremor [Unknown]
  - Dyspnoea [Recovered/Resolved]
  - Insomnia [Unknown]
  - Scleroderma [Unknown]
  - Injection site pain [Not Recovered/Not Resolved]
  - Headache [Not Recovered/Not Resolved]
  - Death [Fatal]
  - Gait disturbance [Unknown]
  - Diarrhoea [Not Recovered/Not Resolved]
  - Nausea [Unknown]
  - Haemorrhage [Unknown]
  - Decreased appetite [Unknown]
  - Nervousness [Unknown]
  - Polyp [Unknown]
  - Fatigue [Unknown]

NARRATIVE: CASE EVENT DATE: 20170308
